FAERS Safety Report 6112214-3 (Version None)
Quarter: 2009Q1

REPORT INFORMATION
  Report Type: 
  Country: None (occurrence: None)
  Receive Date: 20090310
  Receipt Date: 20090303
  Transmission Date: 20090719
  Serious: Yes (Hospitalization, Other)
  Sender: FDA-Public Use
  Company Number: CERZ-1000378

PATIENT
  Age: 63 Year
  Sex: Male
  Weight: 73 kg

DRUGS (9)
  1. CEREZYME [Suspect]
     Indication: GAUCHER'S DISEASE
     Dosage: 2400 , Q2W, INTRAVENOUS; 3000 U, Q2W, INTRAVENOUS
     Route: 042
     Dates: start: 20080101, end: 20080905
  2. CEREZYME [Suspect]
     Indication: GAUCHER'S DISEASE
     Dosage: 2400 , Q2W, INTRAVENOUS; 3000 U, Q2W, INTRAVENOUS
     Route: 042
     Dates: start: 20090112
  3. LIPITOR [Concomitant]
  4. ZETIA [Concomitant]
  5. PROSCAR [Concomitant]
  6. SINEMET [Concomitant]
  7. ALLOPURINOL [Concomitant]
  8. RISPERDAL [Concomitant]
  9. ARICEPT [Concomitant]

REACTIONS (4)
  - ASTHENIA [None]
  - GAIT DISTURBANCE [None]
  - LYMPHOMA [None]
  - NAUSEA [None]
